FAERS Safety Report 20572689 (Version 4)
Quarter: 2022Q2

REPORT INFORMATION
  Report Type: Spontaneous
  Country: IT (occurrence: IT)
  Receive Date: 20220309
  Receipt Date: 20220613
  Transmission Date: 20220721
  Serious: Yes (Other)
  Sender: FDA-Public Use
  Company Number: IT-MENARINI-IT-MEN-081507

PATIENT
  Age: 74 Year
  Sex: Female

DRUGS (3)
  1. RASAGILINE [Suspect]
     Active Substance: RASAGILINE
     Indication: Parkinson^s disease
     Dosage: 1 MILLIGRAM, ONCE A DAY (TAKING RASAGILINE FOR 5 YEARS)
     Route: 048
  2. ALPRAZOLAM [Concomitant]
     Active Substance: ALPRAZOLAM
     Indication: Anxiety
     Dosage: 2 MILLIGRAM, AS NECESSARY
     Route: 065
  3. ALPRAZOLAM [Concomitant]
     Active Substance: ALPRAZOLAM
     Dosage: 2 MILLIGRAM, ONCE A DAY
     Route: 065

REACTIONS (13)
  - Hypersensitivity [Unknown]
  - Withdrawal syndrome [Recovering/Resolving]
  - Hypertension [Recovered/Resolved]
  - Dermatitis allergic [Recovered/Resolved]
  - Drug withdrawal syndrome [Recovered/Resolved]
  - Pain [Recovered/Resolved]
  - Anxiety [Recovered/Resolved]
  - Dysphoria [Recovered/Resolved]
  - Vomiting [Recovered/Resolved]
  - Depression [Recovered/Resolved]
  - Agitation [Recovered/Resolved]
  - Fatigue [Recovered/Resolved]
  - Nausea [Recovered/Resolved]
